FAERS Safety Report 11059782 (Version 1)
Quarter: 2015Q2

REPORT INFORMATION
  Report Type: Spontaneous
  Country: US (occurrence: None)
  Receive Date: 20150422
  Receipt Date: 20150422
  Transmission Date: 20150821
  Serious: Yes (Death)
  Sender: FDA-Public Use
  Company Number: 2826898

PATIENT
  Age: 71 Year

DRUGS (6)
  1. METHOTREXATE [Suspect]
     Active Substance: METHOTREXATE
     Indication: PROPHYLAXIS
     Dosage: 12 MG MILLIGRAM(S) (TOTAL)
     Route: 037
     Dates: start: 20131104
  2. RITUXIMAB [Concomitant]
     Active Substance: RITUXIMAB
  3. CYTARABINE. [Suspect]
     Active Substance: CYTARABINE
     Indication: NERVOUS SYSTEM DISORDER
     Route: 037
  4. INOTUZUMAB OZOGAMICIN [Concomitant]
     Active Substance: INOTUZUMAB OZOGAMICIN
  5. CYTARABINE. [Suspect]
     Active Substance: CYTARABINE
     Indication: PROPHYLAXIS
     Route: 037
  6. METHOTREXATE [Suspect]
     Active Substance: METHOTREXATE
     Indication: NERVOUS SYSTEM DISORDER
     Dosage: 12 MG MILLIGRAM(S) (TOTAL)
     Route: 037
     Dates: start: 20131104

REACTIONS (2)
  - Myelopathy [None]
  - Multi-organ failure [None]

NARRATIVE: CASE EVENT DATE: 20131106
